FAERS Safety Report 20423559 (Version 1)
Quarter: 2022Q1

REPORT INFORMATION
  Report Type: Spontaneous
  Country: US (occurrence: US)
  Receive Date: 20220203
  Receipt Date: 20220203
  Transmission Date: 20220423
  Serious: Yes (Other)
  Sender: FDA-Public Use
  Company Number: US-BEH-2022141498

PATIENT
  Sex: Female

DRUGS (1)
  1. HIZENTRA [Suspect]
     Active Substance: HUMAN IMMUNOGLOBULIN G
     Indication: Immunodeficiency common variable
     Dosage: 10 GRAM, QOW
     Route: 065
     Dates: start: 201709

REACTIONS (3)
  - Basal cell carcinoma [Not Recovered/Not Resolved]
  - Skin lesion [Not Recovered/Not Resolved]
  - Infusion site erythema [Not Recovered/Not Resolved]
